FAERS Safety Report 4421251-6 (Version None)
Quarter: 2004Q3

REPORT INFORMATION
  Report Type: 
  Country: None (occurrence: None)
  Receive Date: 20040707
  Receipt Date: 20040519
  Transmission Date: 20050211
  Serious: No
  Sender: FDA-Public Use
  Company Number: SU-2004-002374

PATIENT
  Age: 72 Year
  Sex: Female
  Weight: 81.6475 kg

DRUGS (2)
  1. BENICAR HCT [Suspect]
     Indication: HYPERTENSION
     Dosage: 20.125 MG QD PO
     Route: 048
     Dates: start: 20040429, end: 20040430
  2. SYNTHROID [Concomitant]

REACTIONS (5)
  - ASTHENIA [None]
  - ASTHMA [None]
  - COELIAC DISEASE [None]
  - CONDITION AGGRAVATED [None]
  - FATIGUE [None]
